FAERS Safety Report 7064647-9 (Version None)
Quarter: 2010Q4

REPORT INFORMATION
  Report Type: 
  Country: None (occurrence: None)
  Receive Date: 20101022
  Receipt Date: 20101022
  Transmission Date: 20110411
  Serious: Yes (Other)
  Sender: FDA-Public Use
  Company Number: None

PATIENT
  Age: 69 Year
  Sex: Female
  Weight: 79 kg

DRUGS (1)
  1. LINEZOLID [Suspect]
     Indication: ARTHRITIS INFECTIVE
     Dosage: 600 MG BID PO
     Route: 048
     Dates: start: 20101006, end: 20101018

REACTIONS (1)
  - PANCYTOPENIA [None]
